FAERS Safety Report 8361892-7 (Version None)
Quarter: 2012Q2

REPORT INFORMATION
  Report Type: 
  Country: None (occurrence: None)
  Receive Date: 20120515
  Receipt Date: 20120509
  Transmission Date: 20120825
  Serious: Yes (Life-Threatening, Hospitalization, Other)
  Sender: FDA-Public Use
  Company Number: CH-PFIZER INC-2012112809

PATIENT
  Age: 72 Year
  Sex: Male

DRUGS (10)
  1. EFFEXOR XR [Suspect]
     Dosage: 75 MG, 1X/DAY
     Route: 048
  2. RABEPRAZOLE SODIUM [Concomitant]
     Dosage: 20 MG, 1X/DAY
     Route: 048
  3. CAVERJECT DC [Interacting]
     Indication: ORGANIC ERECTILE DYSFUNCTION
     Dosage: 20 UG, AS NEEDED
     Route: 017
  4. ATACAND HCT [Concomitant]
     Dosage: 16/12.5 MG DAILY
     Route: 048
  5. EUTHYROX [Concomitant]
     Dosage: 0.1 MG, 1X/DAY
     Route: 048
  6. EZETIMIBE [Concomitant]
     Dosage: 10 MG, 1X/DAY
     Route: 048
  7. PLAVIX [Interacting]
     Indication: MYOCARDIAL ISCHAEMIA
     Dosage: 75 MG, 1X/DAY
     Route: 048
     Dates: start: 20110501, end: 20120424
  8. ASPIRIN [Interacting]
     Dosage: 100 MG, 1X/DAY
     Route: 048
     Dates: start: 19900101
  9. CRESTOR [Concomitant]
     Dosage: 40 MG, 1X/DAY
     Route: 048
  10. ASPIRIN [Interacting]
     Indication: CAROTID ARTERY STENOSIS
     Dosage: 300 MG, 1X/DAY
     Route: 048
     Dates: start: 20000101

REACTIONS (7)
  - POTENTIATING DRUG INTERACTION [None]
  - HAEMATEMESIS [None]
  - DRUG PRESCRIBING ERROR [None]
  - GASTROINTESTINAL HAEMORRHAGE [None]
  - MELAENA [None]
  - DIVERTICULUM [None]
  - HAEMORRHAGIC ANAEMIA [None]
